FAERS Safety Report 19274398 (Version 1)
Quarter: 2021Q2

REPORT INFORMATION
  Report Type: Spontaneous
  Country: US (occurrence: US)
  Receive Date: 20210519
  Receipt Date: 20210519
  Transmission Date: 20210717
  Serious: Yes (Hospitalization)
  Sender: FDA-Public Use
  Company Number: None

PATIENT
  Sex: Male

DRUGS (20)
  1. ATORVASTATIN [Concomitant]
     Active Substance: ATORVASTATIN
  2. ESCITALOPRAM [Concomitant]
     Active Substance: ESCITALOPRAM OXALATE
  3. FLUTICASONE SPR [Concomitant]
  4. LIDOCAINE. [Concomitant]
     Active Substance: LIDOCAINE
  5. AZELASTINE SPR [Concomitant]
  6. POT CL MICRO [Concomitant]
  7. BENZONATE [Concomitant]
     Active Substance: BENZONATATE
  8. BISOPROL FUM [Concomitant]
     Active Substance: BISOPROLOL FUMARATE
  9. IPRATROPIUM [Concomitant]
     Active Substance: IPRATROPIUM
  10. WIXELA INHUB [Concomitant]
     Active Substance: FLUTICASONE PROPIONATE\SALMETEROL XINAFOATE
  11. AZITHRDMYCIN [Concomitant]
  12. BUDESONIDE SUS [Concomitant]
  13. EFER K [Concomitant]
  14. FUROSEMIDE. [Concomitant]
     Active Substance: FUROSEMIDE
  15. NIFEDIPINE. [Concomitant]
     Active Substance: NIFEDIPINE
  16. REPATHA [Suspect]
     Active Substance: EVOLOCUMAB
     Indication: ARTERIOSCLEROSIS
     Dosage: ?          OTHER FREQUENCY:Q14D ;?
     Route: 058
     Dates: start: 20210323
  17. METOPROL SUC [Concomitant]
  18. LOSARTAN POT [Concomitant]
     Active Substance: LOSARTAN POTASSIUM
  19. PREDNISONE. [Concomitant]
     Active Substance: PREDNISONE
  20. ROSUVASTATIN. [Concomitant]
     Active Substance: ROSUVASTATIN

REACTIONS (2)
  - Surgery [None]
  - Therapy interrupted [None]
